FAERS Safety Report 24666188 (Version 1)
Quarter: 2024Q4

REPORT INFORMATION
  Report Type: Spontaneous
  Country: US (occurrence: None)
  Receive Date: 20241126
  Receipt Date: 20241126
  Transmission Date: 20250115
  Serious: Yes (Death)
  Sender: Public
  Company Number: None

PATIENT
  Age: 61 Year
  Sex: Female

DRUGS (1)
  1. SKYRIZI [Suspect]
     Active Substance: RISANKIZUMAB-RZAA
     Indication: Crohn^s disease
     Dosage: OTHER FREQUENCY : EVERY 8 WEEKS;?FREQ: INJECT 2.4 ML UNDER THE SKIN (SUBCUTANEOUS INJECTION) EVERY 8
     Route: 058
     Dates: start: 20240907

REACTIONS (1)
  - Death [None]

NARRATIVE: CASE EVENT DATE: 20241121
